FAERS Safety Report 8216417-3 (Version None)
Quarter: 2012Q1

REPORT INFORMATION
  Report Type: 
  Country: None (occurrence: None)
  Receive Date: 20120316
  Receipt Date: 20120312
  Transmission Date: 20120608
  Serious: Yes (Life-Threatening, Hospitalization)
  Sender: FDA-Public Use
  Company Number: PHHY2012BR021630

PATIENT
  Sex: Female
  Weight: 56 kg

DRUGS (4)
  1. CALCIUM PHOSPHATE W/COLECALCIFEROL [Concomitant]
     Indication: OSTEOPOROSIS
     Dosage: 1 TABLET PER WEEK
     Route: 048
  2. SERTRALINE HYDROCHLORIDE [Concomitant]
     Indication: DEPRESSION
     Dosage: 1 TABLET PER DAY
     Route: 048
  3. ALENDRONATE SODIUM [Concomitant]
     Indication: OSTEOPOROSIS
     Dosage: 1 TABLET PER DAY
     Route: 048
  4. EXELON [Suspect]
     Indication: AMNESIA
     Dosage: 1 CAPSULE PER DAY
     Route: 048
     Dates: start: 20120303

REACTIONS (15)
  - HYPERHIDROSIS [None]
  - EATING DISORDER [None]
  - BLOOD PRESSURE DECREASED [None]
  - DIARRHOEA [None]
  - DEPRESSED MOOD [None]
  - ASTHENIA [None]
  - DIZZINESS [None]
  - MALAISE [None]
  - VOMITING [None]
  - YELLOW SKIN [None]
  - PALLOR [None]
  - SYNCOPE [None]
  - NAUSEA [None]
  - FEAR OF DEATH [None]
  - FATIGUE [None]
